FAERS Safety Report 9705737 (Version 1)
Quarter: 2013Q4

REPORT INFORMATION
  Report Type: Spontaneous
  Country: US (occurrence: US)
  Receive Date: 20131122
  Receipt Date: 20131122
  Transmission Date: 20140711
  Serious: No
  Sender: FDA-Public Use
  Company Number: US-GILEAD-2008-0017879

PATIENT
  Sex: Female

DRUGS (17)
  1. LETAIRIS [Suspect]
     Indication: PULMONARY ARTERIAL HYPERTENSION
     Route: 048
     Dates: start: 20080725
  2. ALCORTIN A [Concomitant]
  3. DAILY VITES [Concomitant]
  4. FLUOXETINE [Concomitant]
  5. MIRALAX [Concomitant]
  6. DIOVAN [Concomitant]
  7. ASPRIN [Concomitant]
  8. METFORMIN [Concomitant]
  9. HCTZ [Concomitant]
  10. LOVASTIN [Concomitant]
  11. FOSAMAX [Concomitant]
  12. ASTELIN [Concomitant]
  13. FLONASE [Concomitant]
  14. PROTONIX [Concomitant]
  15. ALBUTEROL [Concomitant]
  16. SINGULAIR [Concomitant]
  17. ADVAIR [Concomitant]

REACTIONS (1)
  - Oedema peripheral [None]
